FAERS Safety Report 13718803 (Version 2)
Quarter: 2017Q3

REPORT INFORMATION
  Report Type: Spontaneous
  Country: US (occurrence: US)
  Receive Date: 20170705
  Receipt Date: 20170828
  Transmission Date: 20171127
  Serious: Yes (Other)
  Sender: FDA-Public Use
  Company Number: US-PFIZER INC-2017290309

PATIENT
  Age: 66 Year
  Sex: Male
  Weight: 56 kg

DRUGS (4)
  1. ATORVASTATIN [Concomitant]
     Active Substance: ATORVASTATIN
     Indication: BLOOD CHOLESTEROL INCREASED
     Dosage: 10 MG, DAILY
     Route: 048
  2. SUTENT [Suspect]
     Active Substance: SUNITINIB MALATE
     Dosage: 50 MG, CYCLIC (ONCE DAILY FOR 2 WEEKS, THEN ONE WEEK OFF)
     Route: 048
     Dates: start: 201501, end: 2017
  3. LEVOTHYROXINE. [Concomitant]
     Active Substance: LEVOTHYROXINE
     Indication: HYPOTHYROIDISM
     Dosage: 100 UG, 1X/DAY
     Route: 048
  4. SUTENT [Suspect]
     Active Substance: SUNITINIB MALATE
     Indication: PAPILLARY RENAL CELL CARCINOMA
     Dosage: UNK, CYCLIC (FOUR WEEKS ON TWO WEEKS OFF)
     Route: 048
     Dates: start: 201501, end: 2017

REACTIONS (1)
  - Inguinal hernia [Unknown]
